FAERS Safety Report 9152822 (Version 1)
Quarter: 2013Q1

REPORT INFORMATION
  Report Type: Report from Study
  Country: GB (occurrence: GB)
  Receive Date: 20130309
  Receipt Date: 20130309
  Transmission Date: 20140127
  Serious: Yes (Disabling)
  Sender: FDA-Public Use
  Company Number: GB-US-EMD SERONO, INC.-7191936

PATIENT
  Sex: Female
  Weight: 73 kg

DRUGS (4)
  1. REBIF [Suspect]
     Indication: RELAPSING-REMITTING MULTIPLE SCLEROSIS
     Route: 058
     Dates: start: 20120604, end: 20121114
  2. TRAMADOL [Concomitant]
     Indication: PAIN
     Dosage: 50-100MG
     Route: 048
  3. TEGRETOL [Concomitant]
     Indication: PAIN
     Route: 048
  4. OMEPRAZOLE [Concomitant]
     Indication: PRODUCT USED FOR UNKNOWN INDICATION
     Route: 048

REACTIONS (5)
  - Malaise [Recovered/Resolved]
  - Mood swings [Recovered/Resolved]
  - Fatigue [Recovered/Resolved]
  - Injection site bruising [Recovered/Resolved]
  - Injection site mass [Recovered/Resolved]
